FAERS Safety Report 4427183-1 (Version None)
Quarter: 2004Q3

REPORT INFORMATION
  Report Type: 
  Country: None (occurrence: None)
  Receive Date: 20040726
  Receipt Date: 20040414
  Transmission Date: 20050211
  Serious: Yes (Hospitalization, Other)
  Sender: FDA-Public Use
  Company Number: USA040465024

PATIENT
  Age: 66 Year
  Sex: Female

DRUGS (12)
  1. FORTEO [Suspect]
     Indication: OSTEOPOROSIS
  2. ASPIRIN [Concomitant]
  3. CALCIUM [Concomitant]
  4. MULTI-VITAMIN [Concomitant]
  5. DETROL [Concomitant]
  6. FOLIC ACID [Concomitant]
  7. DESYREL [Concomitant]
  8. PAXIL [Concomitant]
  9. LOPRESSOR [Concomitant]
  10. PROTONIX [Concomitant]
  11. PREDNISONE [Concomitant]
  12. PERCOCET [Concomitant]

REACTIONS (2)
  - ASTHENIA [None]
  - PNEUMONIA [None]
